FAERS Safety Report 12666573 (Version 1)
Quarter: 2016Q3

REPORT INFORMATION
  Report Type: Spontaneous
  Country: ES (occurrence: ES)
  Receive Date: 20160819
  Receipt Date: 20160819
  Transmission Date: 20161109
  Serious: Yes (Hospitalization, Other)
  Sender: FDA-Public Use
  Company Number: ES-ALEMBIC PHARMACUETICALS LIMITED-2016SCAL000674

PATIENT

DRUGS (3)
  1. DULOXETINE DR CAPSULE [Suspect]
     Active Substance: DULOXETINE HYDROCHLORIDE
     Indication: BIPOLAR DISORDER
     Dosage: UNK
  2. OLANZAPINE. [Interacting]
     Active Substance: OLANZAPINE
     Indication: BIPOLAR DISORDER
     Dosage: UNK
  3. PHENELZINE [Interacting]
     Active Substance: PHENELZINE
     Indication: BIPOLAR DISORDER
     Dosage: UNK

REACTIONS (1)
  - Serotonin syndrome [Recovered/Resolved]
